FAERS Safety Report 4975639-5 (Version None)
Quarter: 2006Q2

REPORT INFORMATION
  Report Type: 
  Country: None (occurrence: None)
  Receive Date: 20060411
  Receipt Date: 20060405
  Transmission Date: 20061013
  Serious: Yes (Hospitalization)
  Sender: FDA-Public Use
  Company Number: 223319

PATIENT
  Age: 52 Year
  Sex: Male
  Weight: 102 kg

DRUGS (13)
  1. BEVACIZUMAB(BEVACIZUMAB) PWDR + SOLVENT, INFUSION SOLN, 100MG [Suspect]
     Indication: NEOPLASM MALIGNANT
  2. CISPLATIN [Suspect]
     Indication: NEOPLASM MALIGNANT
     Dosage: 33 MG/M2
  3. ERLOTINIB (ERLOTINIB) [Suspect]
     Indication: NEOPLASM MALIGNANT
     Dosage: 100 MG, ORAL
     Route: 048
     Dates: start: 20060321
  4. AMBIEN [Suspect]
     Dosage: 10 MG, QHS
  5. STEROID NOS [Concomitant]
  6. PROTONIX [Concomitant]
  7. OXYCONTIN [Concomitant]
  8. OXYCODONE HCL [Concomitant]
  9. MIRALAX [Concomitant]
  10. ZOFRAN [Concomitant]
  11. RADIATION THERAPY [Concomitant]
  12. SEPTRA DS [Concomitant]
  13. NYSTATIN MOUTHWASH (NYSTATIN) [Concomitant]

REACTIONS (25)
  - BACTERIA URINE IDENTIFIED [None]
  - BAND NEUTROPHIL PERCENTAGE INCREASED [None]
  - BLOOD CHLORIDE DECREASED [None]
  - BLOOD GLUCOSE INCREASED [None]
  - BLOOD SODIUM INCREASED [None]
  - CYSTITIS [None]
  - DIZZINESS [None]
  - ERYTHEMA [None]
  - FACE OEDEMA [None]
  - HAEMOGLOBIN DECREASED [None]
  - LEUKOCYTOCLASTIC VASCULITIS [None]
  - LYMPHOCYTE PERCENTAGE DECREASED [None]
  - NAUSEA [None]
  - NEUTROPHIL PERCENTAGE INCREASED [None]
  - PETECHIAE [None]
  - PNEUMONIA ASPIRATION [None]
  - PYREXIA [None]
  - RASH MACULO-PAPULAR [None]
  - RASH PRURITIC [None]
  - RED BLOOD CELLS URINE POSITIVE [None]
  - SWELLING FACE [None]
  - URINE ABNORMALITY [None]
  - URINE KETONE BODY PRESENT [None]
  - URTICARIA [None]
  - WHITE BLOOD CELLS URINE POSITIVE [None]
